FAERS Safety Report 6369877-7 (Version None)
Quarter: 2009Q3

REPORT INFORMATION
  Report Type: 
  Country: None (occurrence: None)
  Receive Date: 20090923
  Receipt Date: 20070524
  Transmission Date: 20100115
  Serious: No
  Sender: FDA-Public Use
  Company Number: US-ASTRAZENECA-2006UW11357

PATIENT
  Age: 15468 Day
  Sex: Male
  Weight: 125.6 kg

DRUGS (19)
  1. SEROQUEL [Suspect]
     Indication: INSOMNIA
     Route: 048
     Dates: start: 20030501
  2. SEROQUEL [Suspect]
     Dosage: 100-400 MG
     Route: 048
     Dates: start: 19990730
  3. ABILIFY [Concomitant]
  4. HALDOL [Concomitant]
  5. THORAZINE [Concomitant]
  6. FLUOXETINE HCL [Concomitant]
  7. TRAZODONE [Concomitant]
  8. REMERON [Concomitant]
  9. WELLBUTRINE [Concomitant]
  10. GLIPIZIDE [Concomitant]
  11. LIPITOR [Concomitant]
  12. GLUCOPHAGE [Concomitant]
  13. EFFEXOR XR [Concomitant]
  14. ZOLOFT [Concomitant]
  15. GEODON [Concomitant]
  16. DIPHENHYDRAMINE HCL [Concomitant]
  17. DEPAKOTE [Concomitant]
  18. INSULIN [Concomitant]
  19. LISINOPRIL [Concomitant]

REACTIONS (5)
  - DEPRESSED MOOD [None]
  - DIABETES MELLITUS [None]
  - DRUG ABUSE [None]
  - INSOMNIA RELATED TO ANOTHER MENTAL CONDITION [None]
  - PARANOIA [None]
